FAERS Safety Report 10005931 (Version 1)
Quarter: 2014Q1

REPORT INFORMATION
  Report Type: Spontaneous
  Country: US (occurrence: US)
  Receive Date: 20140313
  Receipt Date: 20140313
  Transmission Date: 20141002
  Serious: No
  Sender: FDA-Public Use
  Company Number: US-DRREDDYS-USA/USA/13/0035579

PATIENT
  Sex: Male

DRUGS (1)
  1. DIVALPROEX SODIUM DELAYED RELEASE CAPSULES (SPRINKLES ) [Suspect]
     Indication: MENTAL DISORDER
     Route: 048

REACTIONS (4)
  - Withdrawal syndrome [Unknown]
  - Abdominal pain upper [Unknown]
  - Headache [Unknown]
  - Dyspnoea [Unknown]
